FAERS Safety Report 8545265-X (Version None)
Quarter: 2012Q3

REPORT INFORMATION
  Report Type: 
  Country: None (occurrence: None)
  Receive Date: 20120727
  Receipt Date: 20120717
  Transmission Date: 20120928
  Serious: Yes (Hospitalization)
  Sender: FDA-Public Use
  Company Number: VN-BAXTER-2012BAX011776

PATIENT
  Age: 31 Year
  Sex: Male

DRUGS (2)
  1. DIANEAL [Suspect]
     Dosage: 1 BAG
     Route: 033
  2. DIANEAL [Suspect]
     Dosage: 3 BAGS
     Route: 033

REACTIONS (2)
  - CATHETER SITE HAEMORRHAGE [None]
  - PERITONITIS [None]
